FAERS Safety Report 8290309-6 (Version None)
Quarter: 2012Q2

REPORT INFORMATION
  Report Type: 
  Country: None (occurrence: None)
  Receive Date: 20120412
  Receipt Date: 20120412
  Transmission Date: 20120825
  Serious: Yes (Disabling)
  Sender: FDA-Public Use
  Company Number: None

PATIENT
  Sex: Female

DRUGS (1)
  1. ACTEMRA 60MG/4ML GENENTECH [Suspect]
     Dosage: ACTERA 240MG MONTHLY IV
     Route: 042
     Dates: start: 20110719, end: 20120216

REACTIONS (2)
  - LEG AMPUTATION [None]
  - POOR PERIPHERAL CIRCULATION [None]
